FAERS Safety Report 13075145 (Version 6)
Quarter: 2017Q4

REPORT INFORMATION
  Report Type: Spontaneous
  Country: FR (occurrence: FR)
  Receive Date: 20161230
  Receipt Date: 20171228
  Transmission Date: 20180320
  Serious: Yes (Other)
  Sender: FDA-Public Use
  Company Number: PHHY2016FR149098

PATIENT
  Age: 40 Year
  Sex: Male

DRUGS (5)
  1. RITALINE LP [Suspect]
     Active Substance: METHYLPHENIDATE HYDROCHLORIDE
     Indication: ATTENTION DEFICIT/HYPERACTIVITY DISORDER
     Dosage: 2 DF, QD ( 30 MG, 1 CAPSULE IN THE MORNING AND ONE CAPSULE IN THE AFTERNOON)
     Route: 065
     Dates: start: 2015
  2. NOOTROPYL [Concomitant]
     Active Substance: PIRACETAM
     Indication: PRODUCT USED FOR UNKNOWN INDICATION
     Dosage: UNK
     Route: 065
  3. RITALINE LP [Suspect]
     Active Substance: METHYLPHENIDATE HYDROCHLORIDE
     Dosage: 40 MG CONCENTRATION
     Route: 065
     Dates: start: 20171122
  4. RITALINE LP [Suspect]
     Active Substance: METHYLPHENIDATE HYDROCHLORIDE
     Dosage: 1 DF,  (40 MG CONCENTRATION )
     Route: 065
     Dates: end: 20171120
  5. TRANXENE [Concomitant]
     Active Substance: CLORAZEPATE DIPOTASSIUM
     Indication: PRODUCT USED FOR UNKNOWN INDICATION
     Dosage: 10 MG, UNK
     Route: 065

REACTIONS (17)
  - Somnolence [Unknown]
  - Disturbance in attention [Recovered/Resolved]
  - Aggression [Unknown]
  - Mental impairment [Recovered/Resolved]
  - Headache [Recovered/Resolved]
  - Mental disorder [Unknown]
  - Migraine [Unknown]
  - Torticollis [Recovered/Resolved]
  - Neck pain [Unknown]
  - Disturbance in attention [Unknown]
  - Disturbance in attention [Recovered/Resolved]
  - Distractibility [Unknown]
  - Dizziness [Unknown]
  - Torticollis [Recovered/Resolved]
  - Head discomfort [Recovered/Resolved]
  - Drug ineffective [Recovered/Resolved]
  - Head discomfort [Recovered/Resolved]

NARRATIVE: CASE EVENT DATE: 201610
